FAERS Safety Report 11312079 (Version 1)
Quarter: 2015Q3

REPORT INFORMATION
  Report Type: Spontaneous
  Country: US (occurrence: US)
  Receive Date: 20150727
  Receipt Date: 20150727
  Transmission Date: 20151125
  Serious: Yes (Other)
  Sender: FDA-Public Use
  Company Number: US-ASTRAZENECA-2015SE72037

PATIENT
  Age: 47 Year
  Sex: Female
  Weight: 67.6 kg

DRUGS (5)
  1. SEROQUEL [Suspect]
     Active Substance: QUETIAPINE FUMARATE
     Indication: ANXIETY
     Route: 048
  2. SEROQUEL [Suspect]
     Active Substance: QUETIAPINE FUMARATE
     Indication: ANXIETY
     Route: 048
     Dates: start: 201504
  3. SEROQUEL [Suspect]
     Active Substance: QUETIAPINE FUMARATE
     Indication: ANXIETY
     Route: 048
     Dates: start: 2009
  4. SEROQUEL [Suspect]
     Active Substance: QUETIAPINE FUMARATE
     Indication: ANXIETY
     Route: 048
     Dates: start: 201411, end: 201504
  5. SEROQUEL [Suspect]
     Active Substance: QUETIAPINE FUMARATE
     Indication: ANXIETY
     Dosage: UNKNOWN
     Route: 048
     Dates: start: 20150215, end: 20150219

REACTIONS (12)
  - Myalgia [Unknown]
  - Panic attack [Unknown]
  - Anxiety [Unknown]
  - Pain [Unknown]
  - Back injury [Unknown]
  - Asthenia [Unknown]
  - Muscle tightness [Unknown]
  - Off label use [Unknown]
  - Hypoaesthesia [Unknown]
  - Arthralgia [Unknown]
  - Somnolence [Recovered/Resolved]
  - Paraesthesia [Unknown]

NARRATIVE: CASE EVENT DATE: 2009
